FAERS Safety Report 8826024 (Version 2)
Quarter: 2014Q3

REPORT INFORMATION
  Report Type: Report from Study
  Country: US (occurrence: US)
  Receive Date: 20121005
  Receipt Date: 20140922
  Transmission Date: 20150326
  Serious: Yes (Hospitalization, Other)
  Sender: FDA-Public Use
  Company Number: US-ROCHE-1133051

PATIENT
  Sex: Female

DRUGS (22)
  1. RITUXAN [Suspect]
     Active Substance: RITUXIMAB
     Route: 065
     Dates: start: 19980219
  2. RITUXAN [Suspect]
     Active Substance: RITUXIMAB
     Route: 065
     Dates: start: 19980812
  3. DOXEPIN [Concomitant]
     Active Substance: DOXEPIN
  4. LASIX [Concomitant]
     Active Substance: FUROSEMIDE
  5. RITUXAN [Suspect]
     Active Substance: RITUXIMAB
     Route: 065
     Dates: start: 19980219
  6. SENOKOT [Concomitant]
     Active Substance: SENNOSIDES
  7. FOLIC ACID. [Concomitant]
     Active Substance: FOLIC ACID
  8. COUMADIN [Concomitant]
     Active Substance: WARFARIN SODIUM
  9. NOVANTRONE [Concomitant]
     Active Substance: MITOXANTRONE HYDROCHLORIDE
  10. RITUXAN [Suspect]
     Active Substance: RITUXIMAB
     Dosage: IN HOSPITAL
     Route: 065
     Dates: start: 19980226
  11. NAPROXEN. [Suspect]
     Active Substance: NAPROXEN
     Indication: PRODUCT USED FOR UNKNOWN INDICATION
     Route: 065
  12. ZANTAC [Concomitant]
     Active Substance: RANITIDINE HYDROCHLORIDE
  13. ZOLOFT [Concomitant]
     Active Substance: SERTRALINE HYDROCHLORIDE
  14. RITUXAN [Suspect]
     Active Substance: RITUXIMAB
     Indication: NON-HODGKIN^S LYMPHOMA REFRACTORY
     Route: 065
     Dates: start: 19980212
  15. DECADRON [Concomitant]
     Active Substance: DEXAMETHASONE
  16. MEPERGAN [Concomitant]
     Active Substance: MEPERIDINE HYDROCHLORIDE\PROMETHAZINE HYDROCHLORIDE
     Route: 065
  17. PROCRIT [Concomitant]
     Active Substance: ERYTHROPOIETIN
  18. FLOXIN (UNITED STATES) [Concomitant]
  19. RESTORIL (UNITED STATES) [Concomitant]
  20. CYTOTEC [Concomitant]
     Active Substance: MISOPROSTOL
  21. LANOXIN [Concomitant]
     Active Substance: DIGOXIN
  22. FLUDARA [Concomitant]
     Active Substance: FLUDARABINE PHOSPHATE

REACTIONS (18)
  - Haemolytic anaemia [Unknown]
  - Tenderness [Unknown]
  - Dyspnoea [Unknown]
  - Pneumonia [Unknown]
  - Haemorrhoids [Unknown]
  - Thrombophlebitis [Unknown]
  - Disease progression [Unknown]
  - Night sweats [Unknown]
  - Deep vein thrombosis [Unknown]
  - Chromaturia [Unknown]
  - Pain in extremity [Unknown]
  - Asthenia [Unknown]
  - Feeling hot [Unknown]
  - Oedema [Unknown]
  - Cardiac failure congestive [Unknown]
  - Perianal erythema [Recovering/Resolving]
  - Peripheral swelling [Unknown]
  - Erythema [Unknown]
